FAERS Safety Report 4760688-2 (Version None)
Quarter: 2005Q3

REPORT INFORMATION
  Report Type: 
  Country: None (occurrence: None)
  Receive Date: 20050902
  Receipt Date: 20040616
  Transmission Date: 20060218
  Serious: Yes (Other)
  Sender: FDA-Public Use
  Company Number: KR-JNJFOC-20050806904

PATIENT
  Sex: Female
  Weight: 51 kg

DRUGS (5)
  1. REMINYL [Suspect]
     Route: 048
  2. REMINYL [Suspect]
     Route: 048
  3. REMINYL [Suspect]
     Indication: DEMENTIA ALZHEIMER'S TYPE
     Route: 048
  4. SEROQUEL [Concomitant]
     Route: 048
  5. SEROQUEL [Concomitant]
     Indication: ANXIETY
     Route: 048

REACTIONS (2)
  - ALANINE AMINOTRANSFERASE INCREASED [None]
  - ASPARTATE AMINOTRANSFERASE INCREASED [None]
